FAERS Safety Report 23271470 (Version 1)
Quarter: 2023Q4

REPORT INFORMATION
  Report Type: Spontaneous
  Country: GB (occurrence: GB)
  Receive Date: 20231207
  Receipt Date: 20231207
  Transmission Date: 20240110
  Serious: Yes (Other)
  Sender: FDA-Public Use
  Company Number: None

PATIENT
  Age: 68 Year
  Sex: Female
  Weight: 54 kg

DRUGS (1)
  1. LAMOTRIGINE [Suspect]
     Active Substance: LAMOTRIGINE
     Indication: Affective disorder
     Dosage: 100MGS TWICE DAILY; ;
     Route: 065
     Dates: start: 20230530, end: 20230911

REACTIONS (6)
  - Urinary incontinence [Recovering/Resolving]
  - Irritability [Recovered/Resolved]
  - Insomnia [Recovering/Resolving]
  - Anger [Recovered/Resolved]
  - Abnormal behaviour [Unknown]
  - Fatigue [Unknown]

NARRATIVE: CASE EVENT DATE: 20230601
